FAERS Safety Report 8496092-3 (Version None)
Quarter: 2012Q3

REPORT INFORMATION
  Report Type: 
  Country: None (occurrence: None)
  Receive Date: 20120709
  Receipt Date: 20120629
  Transmission Date: 20120928
  Serious: Yes (Other)
  Sender: FDA-Public Use
  Company Number: US-ASTRAZENECA-2012SE44495

PATIENT
  Age: 70 Year
  Sex: Female
  Weight: 32.7 kg

DRUGS (10)
  1. ADVAIR DISKUS 100/50 [Concomitant]
     Indication: EMPHYSEMA
  2. HYDROXYZINE [Concomitant]
     Indication: MULTIPLE ALLERGIES
  3. DALIRESP [Concomitant]
     Indication: EMPHYSEMA
  4. ANASTROZOLE [Concomitant]
     Indication: NEOPLASM MALIGNANT
     Route: 048
  5. NEXIUM [Suspect]
     Indication: GASTROOESOPHAGEAL REFLUX DISEASE
     Route: 048
     Dates: start: 20080101
  6. GABAPENTIN [Concomitant]
     Indication: PAIN
  7. FENTANYL [Concomitant]
     Indication: PAIN
  8. CRESTOR [Suspect]
     Indication: BLOOD CHOLESTEROL
     Route: 048
  9. NUCYNTA [Concomitant]
     Indication: PAIN
  10. SPIRIVA [Concomitant]
     Indication: EMPHYSEMA
     Route: 055

REACTIONS (6)
  - ARTERIOSCLEROSIS [None]
  - OSTEOPOROSIS [None]
  - BREAST CANCER [None]
  - ADVERSE EVENT [None]
  - HYPOACUSIS [None]
  - MUSCLE SPASMS [None]
